FAERS Safety Report 11377836 (Version 1)
Quarter: 2015Q3

REPORT INFORMATION
  Report Type: Spontaneous
  Country: US (occurrence: US)
  Receive Date: 20150811
  Receipt Date: 20150811
  Transmission Date: 20151125
  Serious: No
  Sender: FDA-Public Use
  Company Number: US-ELI_LILLY_AND_COMPANY-US200909004667

PATIENT
  Age: 80 Year
  Sex: Female

DRUGS (5)
  1. HUMULIN 50/50 [Suspect]
     Active Substance: INSULIN HUMAN
  2. SIMVASTATIN. [Concomitant]
     Active Substance: SIMVASTATIN
     Indication: BLOOD CHOLESTEROL
  3. LIZINOPRIL H [Concomitant]
     Indication: HYPERTENSION
  4. TRAVATAN [Concomitant]
     Active Substance: TRAVOPROST
     Indication: GLAUCOMA
  5. COMBIGAN [Concomitant]
     Active Substance: BRIMONIDINE TARTRATE\TIMOLOL MALEATE
     Indication: GLAUCOMA

REACTIONS (5)
  - Blood glucose increased [Not Recovered/Not Resolved]
  - Nonspecific reaction [Unknown]
  - Drug ineffective [Unknown]
  - Cataract [Unknown]
  - Blood glucose decreased [Not Recovered/Not Resolved]

NARRATIVE: CASE EVENT DATE: 2008
